FAERS Safety Report 15425792 (Version 1)
Quarter: 2018Q3

REPORT INFORMATION
  Report Type: Spontaneous
  Country: BY (occurrence: BY)
  Receive Date: 20180925
  Receipt Date: 20180925
  Transmission Date: 20181010
  Serious: Yes (Life-Threatening, Hospitalization, Other)
  Sender: FDA-Public Use
  Company Number: BY-PFIZER INC-2018378218

PATIENT
  Age: 29 Year
  Sex: Female
  Weight: 51.79 kg

DRUGS (36)
  1. LINEZOLID. [Suspect]
     Active Substance: LINEZOLID
     Dosage: 600 MG, 1X/DAY
     Route: 048
     Dates: start: 20180612, end: 20180616
  2. ACIDUM FOLICUM [Concomitant]
     Active Substance: FOLIC ACID
     Dosage: UNK
     Dates: start: 20180117, end: 20180606
  3. GENTAMYCIN [Concomitant]
     Active Substance: GENTAMICIN
     Dosage: UNK
     Dates: start: 20180117, end: 20180129
  4. GEFAL [Concomitant]
     Dosage: UNK
     Dates: start: 20180306, end: 20180317
  5. CORAXAN [Concomitant]
     Dosage: UNK
     Dates: start: 20180428, end: 20180606
  6. CLOFAZIMINE [Suspect]
     Active Substance: CLOFAZIMINE
     Dosage: UNK UNK, 1X/DAY [200?100MG]
     Route: 048
     Dates: start: 20180612, end: 20180616
  7. FLUCONAZOLE. [Concomitant]
     Active Substance: FLUCONAZOLE
     Dosage: UNK
     Dates: start: 20180306, end: 20180606
  8. BISOPROLOL [Concomitant]
     Active Substance: BISOPROLOL
     Dosage: UNK
     Dates: start: 20180117, end: 20180302
  9. ACC [ACETYLCYSTEINE] [Concomitant]
     Active Substance: ACETYLCYSTEINE
     Dosage: UNK
     Dates: start: 20180117, end: 20180213
  10. AMITRIPTYLINE [Concomitant]
     Active Substance: AMITRIPTYLINE
     Dosage: UNK
     Dates: start: 20180206, end: 20180420
  11. LOSARTAN. [Concomitant]
     Active Substance: LOSARTAN
     Dosage: UNK
  12. CAPREOMYCIN [Suspect]
     Active Substance: CAPREOMYCIN
     Indication: PULMONARY TUBERCULOSIS
     Dosage: 1000 MG, 1X/DAY
     Route: 030
     Dates: start: 20180117, end: 20180606
  13. LOSARTAN. [Concomitant]
     Active Substance: LOSARTAN
     Dosage: UNK
     Dates: start: 20180428, end: 20180606
  14. DIAZEPAM. [Concomitant]
     Active Substance: DIAZEPAM
     Dosage: UNK
     Dates: start: 20180608, end: 20180616
  15. ESSENTICAPSUM [Concomitant]
     Dosage: UNK
     Dates: start: 20180117, end: 20180606
  16. LINEZOLID. [Suspect]
     Active Substance: LINEZOLID
     Indication: PULMONARY TUBERCULOSIS
     Dosage: 600 MG, 1X/DAY
     Route: 048
     Dates: start: 20180117, end: 20180606
  17. CAPREOMYCIN [Suspect]
     Active Substance: CAPREOMYCIN
     Dosage: 1000 MG, 1X/DAY
     Route: 030
     Dates: start: 20180612, end: 20180616
  18. FLUCONAZOLE. [Concomitant]
     Active Substance: FLUCONAZOLE
     Dosage: UNK
     Dates: start: 20180117, end: 20180306
  19. FAMOTIDINE. [Concomitant]
     Active Substance: FAMOTIDINE
     Dosage: UNK
     Dates: start: 20180117, end: 20180306
  20. METOPROLOL. [Concomitant]
     Active Substance: METOPROLOL
     Dosage: UNK
     Dates: start: 20180302, end: 20180606
  21. LEVOFLOXACIN. [Suspect]
     Active Substance: LEVOFLOXACIN
     Indication: PULMONARY TUBERCULOSIS
     Dosage: 1000 MG, 1X/DAY
     Route: 048
     Dates: start: 20180117, end: 20180606
  22. CEFAZOLIN [Concomitant]
     Active Substance: CEFAZOLIN
     Dosage: UNK
     Dates: start: 20180117, end: 20180129
  23. LOSARTAN. [Concomitant]
     Active Substance: LOSARTAN
     Dosage: UNK
     Dates: start: 20180302, end: 20180306
  24. ONDANSETRON [Concomitant]
     Active Substance: ONDANSETRON
     Dosage: UNK
     Dates: start: 20180510, end: 20180606
  25. LEVOFLOXACIN. [Suspect]
     Active Substance: LEVOFLOXACIN
     Dosage: 1000 MG, 1X/DAY
     Route: 048
     Dates: start: 20180612, end: 20180616
  26. NEUROMULTIVIT [Concomitant]
     Active Substance: CYANOCOBALAMIN\PYRIDOXINE\THIAMINE
     Dosage: UNK
     Dates: start: 20180117, end: 20180606
  27. COTRIMOXAZOLE [Concomitant]
     Active Substance: SULFAMETHOXAZOLE\TRIMETHOPRIM
     Dosage: UNK
     Dates: start: 20180117, end: 20180606
  28. CLOFAZIMINE [Suspect]
     Active Substance: CLOFAZIMINE
     Indication: PULMONARY TUBERCULOSIS
     Dosage: UNK UNK, 1X/DAY (200?100MG)
     Route: 048
     Dates: start: 20180117, end: 20180606
  29. DELAMANID [Suspect]
     Active Substance: DELAMANID
     Indication: PULMONARY TUBERCULOSIS
     Dosage: 200 MG, 1X/DAY
     Route: 048
     Dates: start: 20180117, end: 20180606
  30. DELAMANID [Suspect]
     Active Substance: DELAMANID
     Dosage: 200 MG, 1X/DAY
     Route: 048
     Dates: start: 20180612, end: 20180616
  31. FLUCONAZOLE. [Concomitant]
     Active Substance: FLUCONAZOLE
     Dosage: UNK
     Dates: start: 20180608, end: 20180616
  32. LISINOPRIL. [Concomitant]
     Active Substance: LISINOPRIL
     Dosage: UNK
     Dates: start: 20180117, end: 20180302
  33. LISINOPRIL. [Concomitant]
     Active Substance: LISINOPRIL
     Dosage: UNK
     Dates: start: 20180428, end: 20180606
  34. TRIMETAZIDIN [Concomitant]
     Active Substance: TRIMETAZIDINE
     Dosage: UNK
     Dates: start: 20180302, end: 20180420
  35. OMEPRAZOL [Concomitant]
     Active Substance: OMEPRAZOLE
     Dosage: UNK
     Dates: start: 20180528, end: 20180606
  36. ASPICARD [Concomitant]
     Dosage: UNK
     Dates: start: 20180117, end: 20180420

REACTIONS (9)
  - Suicide attempt [Recovered/Resolved]
  - Chronic hepatitis C [Unknown]
  - Cardiac failure [Unknown]
  - Personality disorder [Unknown]
  - Endocarditis [Unknown]
  - Hypertension [Unknown]
  - Alcohol poisoning [Unknown]
  - HIV infection [Unknown]
  - Aggression [Unknown]

NARRATIVE: CASE EVENT DATE: 20180606
